FAERS Safety Report 25862999 (Version 3)
Quarter: 2025Q4

REPORT INFORMATION
  Report Type: Spontaneous
  Country: US (occurrence: US)
  Receive Date: 20250930
  Receipt Date: 20251014
  Transmission Date: 20260117
  Serious: Yes (Other)
  Sender: ALEXION PHARMACEUTICALS
  Company Number: US-AstraZeneca-CH-00960024AP

PATIENT
  Age: 62 Year
  Sex: Male

DRUGS (2)
  1. TEZSPIRE [Suspect]
     Active Substance: TEZEPELUMAB-EKKO
     Dosage: 210 MILLIGRAM
     Route: 065
  2. TEZSPIRE [Suspect]
     Active Substance: TEZEPELUMAB-EKKO

REACTIONS (7)
  - Product dose omission issue [Unknown]
  - Illness [Unknown]
  - Dyspnoea [Unknown]
  - Neoplasm malignant [Unknown]
  - Pneumonitis [Unknown]
  - Chronic obstructive pulmonary disease [Unknown]
  - Asthma [Unknown]
